FAERS Safety Report 13960413 (Version 1)
Quarter: 2017Q3

REPORT INFORMATION
  Report Type: Report from Study
  Country: FR (occurrence: FR)
  Receive Date: 20170912
  Receipt Date: 20170912
  Transmission Date: 20171128
  Serious: Yes (Hospitalization, Other)
  Sender: FDA-Public Use
  Company Number: FR-BRISTOL-MYERS SQUIBB COMPANY-BMS-2017-079338

PATIENT
  Age: 56 Year
  Sex: Female

DRUGS (4)
  1. HYPNOVEL                           /00634101/ [Concomitant]
     Indication: PRODUCT USED FOR UNKNOWN INDICATION
     Route: 065
  2. MORPHINE [Concomitant]
     Active Substance: MORPHINE
     Indication: PRODUCT USED FOR UNKNOWN INDICATION
     Route: 065
  3. NIVOLUMAB [Suspect]
     Active Substance: NIVOLUMAB
     Indication: LUNG NEOPLASM MALIGNANT
     Dosage: 190 MG, Q2WK
     Route: 042
     Dates: start: 20161219
  4. FURADANTINE [Concomitant]
     Active Substance: NITROFURANTOIN
     Indication: PRODUCT USED FOR UNKNOWN INDICATION
     Route: 065

REACTIONS (13)
  - Dyspnoea [Not Recovered/Not Resolved]
  - Urinary tract discomfort [Recovering/Resolving]
  - Chest pain [Recovered/Resolved]
  - Musculoskeletal chest pain [Unknown]
  - Arthralgia [Recovering/Resolving]
  - Decreased appetite [Unknown]
  - Urinary tract infection enterococcal [Unknown]
  - Asthenia [Not Recovered/Not Resolved]
  - Odynophagia [Unknown]
  - Cough [Recovered/Resolved]
  - Dry skin [Recovered/Resolved]
  - Dyspepsia [Unknown]
  - General physical health deterioration [Recovered/Resolved]

NARRATIVE: CASE EVENT DATE: 20161219
